FAERS Safety Report 4273466-8 (Version None)
Quarter: 2004Q1

REPORT INFORMATION
  Report Type: 
  Country: None (occurrence: None)
  Receive Date: 20040116
  Receipt Date: 20040116
  Transmission Date: 20041129
  Serious: Yes (Hospitalization)
  Sender: FDA-Public Use
  Company Number: None

PATIENT
  Age: 69 Year
  Sex: Male
  Weight: 84.369 kg

DRUGS (3)
  1. DIGOXIN [Suspect]
     Indication: CARDIAC FAILURE CONGESTIVE
     Dosage: 0.125MG PO
     Route: 048
  2. METOPROLOL [Suspect]
     Indication: ATRIAL FIBRILLATION
     Dosage: 75 MG PO BID
     Route: 048
  3. AMIODARONE HCL [Suspect]

REACTIONS (1)
  - BRADYCARDIA [None]
